FAERS Safety Report 9713094 (Version 2)
Quarter: 2013Q4

REPORT INFORMATION
  Report Type: Spontaneous
  Country: US (occurrence: US)
  Receive Date: 20131126
  Receipt Date: 20131126
  Transmission Date: 20140711
  Serious: Yes (Hospitalization, Other)
  Sender: FDA-Public Use
  Company Number: US-ASTELLAS-2013US006023

PATIENT
  Age: 69 Year
  Sex: Male

DRUGS (13)
  1. LEXISCAN [Suspect]
     Indication: SCAN MYOCARDIAL PERFUSION
     Dosage: 0.08 MG/ML, TOTAL DOSE
     Dates: start: 20130523, end: 20130523
  2. ECOTRIN [Concomitant]
     Indication: MYOCARDIAL ISCHAEMIA
     Dosage: 81 MG, UID/QD
     Route: 065
  3. LISINOPRIL + HIDROCLOROTIAZIDA [Concomitant]
     Indication: HYPERTENSION
     Dosage: 1 DF, UID/QD
     Route: 065
  4. FELODIPINE [Concomitant]
     Indication: HYPERLIPIDAEMIA
     Dosage: 1 DF, UID/QD
     Route: 065
  5. ATENOLOL [Concomitant]
     Indication: MYOCARDIAL ISCHAEMIA
     Dosage: 50 MG, UID/QD
     Route: 065
  6. NITROCINE [Concomitant]
     Indication: MYOCARDIAL ISCHAEMIA
     Dosage: 1 DF, PRN
     Route: 060
  7. ATORVASTATIN CALCIUM [Concomitant]
     Indication: HYPERLIPIDAEMIA
     Dosage: 20 MG, UID/QD
     Route: 065
  8. IMDUR [Concomitant]
     Indication: MYOCARDIAL ISCHAEMIA
     Dosage: 60 MG, UID/QD
     Route: 065
  9. PLAVIX [Concomitant]
     Indication: MYOCARDIAL ISCHAEMIA
     Dosage: 75 MG, UNKNOWN/D
     Route: 065
  10. METFORMIN HCL [Concomitant]
     Indication: PRODUCT USED FOR UNKNOWN INDICATION
     Dosage: 500 MG, BID
     Route: 048
  11. JANUVIA [Concomitant]
     Indication: PRODUCT USED FOR UNKNOWN INDICATION
     Dosage: 100 MG, UID/QD
     Route: 048
  12. GLYBURIDE [Concomitant]
     Indication: PRODUCT USED FOR UNKNOWN INDICATION
     Dosage: 5 MG, BID
     Route: 048
  13. VICTOZA [Concomitant]
     Indication: PRODUCT USED FOR UNKNOWN INDICATION
     Dosage: 18MG/3 ML
     Route: 058

REACTIONS (2)
  - Myocardial ischaemia [Unknown]
  - Bundle branch block right [Unknown]
